FAERS Safety Report 10285104 (Version 1)
Quarter: 2014Q3

REPORT INFORMATION
  Report Type: Report from Study
  Country: DE (occurrence: DE)
  Receive Date: 20140708
  Receipt Date: 20140708
  Transmission Date: 20150326
  Serious: Yes (Hospitalization)
  Sender: FDA-Public Use
  Company Number: US-ASTRAZENECA-2014SE48959

PATIENT
  Sex: Female
  Weight: 5.1 kg

DRUGS (1)
  1. SYNAGIS [Suspect]
     Active Substance: PALIVIZUMAB
     Indication: ANTIVIRAL PROPHYLAXIS
     Dosage: 42-113 MG PER INJECTION, DEPENDENT ON ACTUAL WEIGHT, MONTHLY
     Route: 030
     Dates: start: 20131104, end: 20140515

REACTIONS (6)
  - Bronchitis [Recovering/Resolving]
  - Oxygen saturation decreased [Recovered/Resolved]
  - General physical health deterioration [Recovered/Resolved]
  - Nasopharyngitis [Recovered/Resolved]
  - Cough [Recovered/Resolved]
  - Tachypnoea [Recovered/Resolved]

NARRATIVE: CASE EVENT DATE: 201401
